FAERS Safety Report 9731206 (Version 2)
Quarter: 2014Q1

REPORT INFORMATION
  Report Type: Spontaneous
  Country: US (occurrence: US)
  Receive Date: 20131205
  Receipt Date: 20140324
  Transmission Date: 20141002
  Serious: Yes (Death, Hospitalization)
  Sender: FDA-Public Use
  Company Number: US-BRISTOL-MYERS SQUIBB COMPANY-19867092

PATIENT
  Age: 39 Year
  Sex: Female

DRUGS (4)
  1. BARACLUDE [Suspect]
     Indication: HEPATITIS B
     Route: 048
     Dates: start: 201204, end: 201310
  2. SPIRONOLACTONE [Concomitant]
     Dates: start: 2011
  3. LACTULOSE [Concomitant]
     Dates: start: 2011
  4. FUROSEMIDE [Concomitant]
     Dates: start: 2011

REACTIONS (2)
  - Hepatic failure [Fatal]
  - Hepatitis D [Fatal]
